FAERS Safety Report 17584521 (Version 1)
Quarter: 2020Q1

REPORT INFORMATION
  Report Type: Report from Study
  Country: None (occurrence: US)
  Receive Date: 20200326
  Receipt Date: 20200326
  Transmission Date: 20200409
  Serious: Yes (Other)
  Sender: FDA-Public Use
  Company Number: US-ABBVIE-20K-163-3236037-00

PATIENT
  Age: 36 Year
  Sex: Female

DRUGS (2)
  1. HUMIRA [Suspect]
     Active Substance: ADALIMUMAB
     Indication: CROHN^S DISEASE
     Dosage: CITRATE FREE
     Route: 058
     Dates: start: 20191230, end: 20191230
  2. HUMIRA [Suspect]
     Active Substance: ADALIMUMAB
     Dosage: CITRATE FREE
     Route: 058
     Dates: start: 20200113

REACTIONS (30)
  - Anxiety [Not Recovered/Not Resolved]
  - Pyrexia [Not Recovered/Not Resolved]
  - Diarrhoea [Not Recovered/Not Resolved]
  - Dizziness [Unknown]
  - Constipation [Not Recovered/Not Resolved]
  - Depression [Unknown]
  - Decreased appetite [Not Recovered/Not Resolved]
  - Nausea [Not Recovered/Not Resolved]
  - Depressed mood [Recovering/Resolving]
  - Abdominal pain upper [Not Recovered/Not Resolved]
  - Rectal haemorrhage [Recovering/Resolving]
  - Dry skin [Unknown]
  - Loss of personal independence in daily activities [Not Recovered/Not Resolved]
  - Insomnia [Not Recovered/Not Resolved]
  - Dyspnoea [Unknown]
  - Cervix haemorrhage uterine [Unknown]
  - Fatigue [Unknown]
  - Pain [Recovering/Resolving]
  - Hernia [Unknown]
  - Hyperhidrosis [Unknown]
  - Injection site bruising [Unknown]
  - Mood swings [Unknown]
  - Sensory disturbance [Unknown]
  - Increased tendency to bruise [Unknown]
  - Irritable bowel syndrome [Unknown]
  - Fear [Not Recovered/Not Resolved]
  - Cough [Unknown]
  - Vomiting [Not Recovered/Not Resolved]
  - Diarrhoea [Recovering/Resolving]
  - Abnormal faeces [Not Recovered/Not Resolved]

NARRATIVE: CASE EVENT DATE: 202003
